FAERS Safety Report 9393513 (Version 1)
Quarter: 2013Q3

REPORT INFORMATION
  Report Type: Report from Study
  Country: US (occurrence: US)
  Receive Date: 20130710
  Receipt Date: 20130710
  Transmission Date: 20140515
  Serious: Yes (Hospitalization)
  Sender: FDA-Public Use
  Company Number: US-BRISTOL-MYERS SQUIBB COMPANY-19073337

PATIENT
  Age: 61 Year
  Sex: Male

DRUGS (5)
  1. IPILIMUMAB [Suspect]
     Indication: MALIGNANT MELANOMA
     Route: 042
     Dates: start: 20130626
  2. CISPLATIN [Suspect]
     Indication: MALIGNANT MELANOMA
     Route: 042
     Dates: start: 20130627
  3. TEMOZOLOMIDE [Suspect]
     Indication: MALIGNANT MELANOMA
     Route: 048
     Dates: start: 20130627
  4. INTERFERON ALFA-2B [Suspect]
     Indication: MALIGNANT MELANOMA
     Route: 058
     Dates: start: 20130627
  5. ALDESLEUKIN [Suspect]
     Indication: MALIGNANT MELANOMA
     Route: 042
     Dates: start: 20130627

REACTIONS (3)
  - Hypotension [Unknown]
  - Confusional state [Unknown]
  - Renal failure acute [Unknown]
